FAERS Safety Report 14821411 (Version 1)
Quarter: 2018Q2

REPORT INFORMATION
  Report Type: Spontaneous
  Country: BA (occurrence: BA)
  Receive Date: 20180427
  Receipt Date: 20180427
  Transmission Date: 20180711
  Serious: Yes (Death, Hospitalization, Other)
  Sender: FDA-Public Use
  Company Number: BA-TEVA-2018-BA-870786

PATIENT
  Age: 67 Year
  Sex: Male

DRUGS (4)
  1. RISSET [Suspect]
     Active Substance: RISPERIDONE
     Dosage: 2 MILLIGRAM DAILY;
     Route: 048
  2. APAURIN [Concomitant]
     Active Substance: DIAZEPAM
     Indication: RESTLESSNESS
     Dosage: 30 MILLIGRAM DAILY;
  3. AKINETON [Concomitant]
     Active Substance: BIPERIDEN HYDROCHLORIDE
     Indication: EXTRAPYRAMIDAL DISORDER
     Dosage: 2 MILLIGRAM DAILY;
     Route: 048
  4. PROMAZIN [Concomitant]
     Active Substance: PROMAZINE
     Indication: SCHIZOPHRENIA
     Dosage: 200 MILLIGRAM DAILY;
     Route: 048

REACTIONS (5)
  - Neuroleptic malignant syndrome [Fatal]
  - Cardio-respiratory arrest [Recovered/Resolved]
  - Pneumonia [Fatal]
  - Bradycardia [Recovered/Resolved]
  - Hypotension [Recovered/Resolved]
